FAERS Safety Report 5311723-4 (Version None)
Quarter: 2007Q2

REPORT INFORMATION
  Report Type: 
  Country: None (occurrence: None)
  Receive Date: 20070426
  Receipt Date: 20070426
  Transmission Date: 20071010
  Serious: No
  Sender: FDA-Public Use
  Company Number: None

PATIENT
  Age: 61 Year
  Sex: Male
  Weight: 89.5401 kg

DRUGS (2)
  1. JANUVIA [Suspect]
     Indication: DIABETES MELLITUS NON-INSULIN-DEPENDENT
     Dosage: 100 MG  DAILY  PO
     Route: 048
     Dates: start: 20061111, end: 20070218
  2. JANUVIA [Suspect]
     Indication: DIABETES MELLITUS NON-INSULIN-DEPENDENT
     Dosage: 100 MG  DAILY  PO
     Route: 048
     Dates: start: 20070305, end: 20070305

REACTIONS (2)
  - PRURITUS [None]
  - RASH ERYTHEMATOUS [None]
